FAERS Safety Report 6084702-X (Version None)
Quarter: 2009Q1

REPORT INFORMATION
  Report Type: 
  Country: None (occurrence: None)
  Receive Date: 20090217
  Receipt Date: 20090205
  Transmission Date: 20090719
  Serious: Yes (Hospitalization)
  Sender: FDA-Public Use
  Company Number: 1000003927

PATIENT
  Age: 68 Year
  Sex: Male

DRUGS (2)
  1. MEMANTINE HCL [Suspect]
     Indication: DEMENTIA ALZHEIMER'S TYPE
     Dosage: 5 MG (5 MG, 1 IN 1 D) ,ORAL
     Route: 048
     Dates: start: 20090124, end: 20090127
  2. DONEPEZIL HCL [Concomitant]

REACTIONS (1)
  - CONVULSION [None]
